FAERS Safety Report 19374656 (Version 1)
Quarter: 2021Q2

REPORT INFORMATION
  Report Type: Spontaneous
  Country: US (occurrence: US)
  Receive Date: 20210604
  Receipt Date: 20210604
  Transmission Date: 20210717
  Serious: No
  Sender: FDA-Public Use
  Company Number: US-BAUSCH-BL-2021-016967

PATIENT
  Sex: Female

DRUGS (1)
  1. TRETINOIN CREAM 0.05% [Suspect]
     Active Substance: TRETINOIN
     Indication: SKIN WRINKLING
     Dosage: STARTED APPROXIMATELY 1 MONTH BACK
     Route: 061
     Dates: start: 2021

REACTIONS (6)
  - Wound haemorrhage [Not Recovered/Not Resolved]
  - Tenderness [Not Recovered/Not Resolved]
  - Pain of skin [Not Recovered/Not Resolved]
  - Dry skin [Not Recovered/Not Resolved]
  - Skin lesion [Not Recovered/Not Resolved]
  - Skin exfoliation [Not Recovered/Not Resolved]

NARRATIVE: CASE EVENT DATE: 2021
